FAERS Safety Report 12503226 (Version 1)
Quarter: 2016Q2

REPORT INFORMATION
  Report Type: Spontaneous
  Country: US (occurrence: US)
  Receive Date: 20160628
  Receipt Date: 20160628
  Transmission Date: 20160815
  Serious: No
  Sender: FDA-Public Use
  Company Number: US-FERRINGPH-2015FE01590

PATIENT
  Age: 39 Year
  Sex: Female
  Weight: 48.53 kg

DRUGS (2)
  1. BRAVELLE [Suspect]
     Active Substance: FOLLITROPIN\UROFOLLITROPIN
     Indication: IN VITRO FERTILISATION
     Dosage: 75 IU, DAILY
     Route: 058
     Dates: start: 20150513
  2. ZETIA [Concomitant]
     Active Substance: EZETIMIBE

REACTIONS (1)
  - Paraesthesia [Not Recovered/Not Resolved]

NARRATIVE: CASE EVENT DATE: 20150514
